FAERS Safety Report 25907381 (Version 2)
Quarter: 2025Q4

REPORT INFORMATION
  Report Type: Spontaneous
  Country: ZA (occurrence: ZA)
  Receive Date: 20251010
  Receipt Date: 20251014
  Transmission Date: 20260117
  Serious: Yes (Other)
  Sender: ABBVIE
  Company Number: None

PATIENT
  Age: 72 Year
  Sex: Female

DRUGS (6)
  1. CIPRALEX [Suspect]
     Active Substance: ESCITALOPRAM OXALATE
     Indication: Depression
     Dosage: 20 MILLIGRAM
     Route: 048
  2. ESTRIOL\LACTOBACILLUS ACIDOPHILUS [Suspect]
     Active Substance: ESTRIOL\LACTOBACILLUS ACIDOPHILUS
     Indication: Product used for unknown indication
     Dosage: USE AS PER PACKAGE INSERT
     Route: 067
  3. EUTHYROX [Suspect]
     Active Substance: LEVOTHYROXINE SODIUM
     Indication: Hypothyroidism
     Dosage: STRENGTH: 75 MICROGRAM
     Route: 048
  4. RIVOTRIL [Suspect]
     Active Substance: CLONAZEPAM
     Indication: Epilepsy
     Dosage: STRENGTH: 0.5 MILLIGRAM
     Route: 048
  5. ESTRADIOL [Suspect]
     Active Substance: ESTRADIOL
     Indication: Hormone replacement therapy
     Dosage: STRENGTH: 75 MICROGRAM
     Route: 061
  6. SULFASALAZINE [Suspect]
     Active Substance: SULFASALAZINE
     Indication: Colitis ulcerative
     Dosage: STRENGTH: 500 MILLIGRAM
     Route: 048

REACTIONS (1)
  - Systemic lupus erythematosus [Unknown]
